FAERS Safety Report 10530075 (Version 1)
Quarter: 2014Q4

REPORT INFORMATION
  Report Type: Spontaneous
  Country: US (occurrence: None)
  Receive Date: 20141020
  Receipt Date: 20141020
  Transmission Date: 20150528
  Serious: Yes (Death)
  Sender: FDA-Public Use
  Company Number: None

PATIENT
  Age: 79 Year
  Sex: Male

DRUGS (2)
  1. XTANDI [Suspect]
     Active Substance: ENZALUTAMIDE
     Indication: PROSTATE CANCER
     Route: 048
     Dates: start: 20140227, end: 201405
  2. CLOPIDOGREL [Concomitant]
     Active Substance: CLOPIDOGREL BISULFATE

REACTIONS (1)
  - Disease progression [None]

NARRATIVE: CASE EVENT DATE: 201405
